FAERS Safety Report 5400919-9 (Version None)
Quarter: 2007Q3

REPORT INFORMATION
  Report Type: 
  Country: None (occurrence: None)
  Receive Date: 20070730
  Receipt Date: 20061108
  Transmission Date: 20080115
  Serious: No
  Sender: FDA-Public Use
  Company Number: A0626747A

PATIENT
  Age: 18 Month
  Sex: Male

DRUGS (7)
  1. ZANTAC 150 [Suspect]
     Indication: DUODENAL ULCER
     Dosage: 90MG TWICE PER DAY
     Route: 048
  2. PREVACID [Concomitant]
  3. GASTROCROM [Concomitant]
  4. SINGULAIR [Concomitant]
  5. ZYRTEC [Concomitant]
  6. CYPROHEPTADINE HCL [Concomitant]
  7. EPIPEN [Concomitant]

REACTIONS (2)
  - BLOOD GASTRIN INCREASED [None]
  - DRUG INEFFECTIVE [None]
